FAERS Safety Report 7011750-5 (Version None)
Quarter: 2010Q3

REPORT INFORMATION
  Report Type: 
  Country: None (occurrence: None)
  Receive Date: 20100923
  Receipt Date: 20090817
  Transmission Date: 20110219
  Serious: No
  Sender: FDA-Public Use
  Company Number: US-WYE-H10635609

PATIENT
  Age: 57 Year
  Sex: Female

DRUGS (2)
  1. PREMARIN [Suspect]
     Indication: VULVOVAGINAL DRYNESS
     Dosage: 2 GM 2-3 TIMES A WEEK
     Route: 067
     Dates: start: 20090601
  2. PREMARIN [Suspect]
     Indication: ATROPHIC VULVOVAGINITIS

REACTIONS (5)
  - MEDICATION RESIDUE [None]
  - PRURITUS GENITAL [None]
  - VULVOVAGINAL BURNING SENSATION [None]
  - VULVOVAGINAL DISCOMFORT [None]
  - VULVOVAGINAL MYCOTIC INFECTION [None]
